FAERS Safety Report 4950154-3 (Version None)
Quarter: 2006Q1

REPORT INFORMATION
  Report Type: 
  Country: None (occurrence: None)
  Receive Date: 20060316
  Receipt Date: 20060308
  Transmission Date: 20060701
  Serious: Yes (Other)
  Sender: FDA-Public Use
  Company Number: 200610284BNE

PATIENT
  Age: 67 Year
  Sex: Male
  Weight: 87.6 kg

DRUGS (5)
  1. SORAFENIB [Suspect]
     Indication: METASTATIC MALIGNANT MELANOMA
     Dosage: SEE IMAGE
     Route: 048
     Dates: start: 20050902, end: 20050909
  2. SORAFENIB [Suspect]
     Indication: METASTATIC MALIGNANT MELANOMA
     Dosage: SEE IMAGE
     Route: 048
     Dates: start: 20050916
  3. DACARBAZINE [Suspect]
     Indication: METASTATIC MALIGNANT MELANOMA
     Dosage: 2000 MG, TOTAL DAILY, INTRAVENOUS
     Route: 042
     Dates: start: 20050902, end: 20060210
  4. PYRIDOXINE HCL [Concomitant]
  5. METOCLOPRAMIDE [Concomitant]

REACTIONS (1)
  - SQUAMOUS CELL CARCINOMA [None]
